FAERS Safety Report 6955693-1 (Version None)
Quarter: 2010Q3

REPORT INFORMATION
  Report Type: 
  Country: None (occurrence: None)
  Receive Date: 20100830
  Receipt Date: 20100820
  Transmission Date: 20110219
  Serious: Yes (Other)
  Sender: FDA-Public Use
  Company Number: US-ABBOTT-10P-163-0665442-00

PATIENT
  Sex: Male
  Weight: 83.99 kg

DRUGS (13)
  1. HUMIRA [Suspect]
     Indication: PSORIASIS
     Dates: start: 20080101
  2. HUMIRA [Suspect]
     Indication: ARTHRITIS
  3. FLOMAX [Concomitant]
     Indication: PROSTATIC DISORDER
  4. FLUOXETINE [Concomitant]
     Indication: DEPRESSION
  5. VICA FORTE [Concomitant]
     Indication: VITAMIN SUPPLEMENTATION
  6. OXYDONE [Concomitant]
     Indication: ARTHRITIS
  7. RAMIPRIL [Concomitant]
     Indication: HYPERTENSION
  8. FLUTICASONE PROPIONATE [Concomitant]
     Indication: HYPERSENSITIVITY
  9. SINGULAIR [Concomitant]
     Indication: HYPERSENSITIVITY
  10. OMEPRAZOLE [Concomitant]
     Indication: GASTROOESOPHAGEAL REFLUX DISEASE
  11. CRESTOR [Concomitant]
     Indication: HYPERLIPIDAEMIA
  12. AMBIEN [Concomitant]
     Indication: SLEEP DISORDER THERAPY
  13. DIAZEPAM [Concomitant]
     Indication: SLEEP DISORDER THERAPY

REACTIONS (2)
  - GROIN PAIN [None]
  - INGUINAL HERNIA [None]
